FAERS Safety Report 9454829 (Version 2)
Quarter: 2013Q4

REPORT INFORMATION
  Report Type: Spontaneous
  Country: JP (occurrence: JP)
  Receive Date: 20130813
  Receipt Date: 20131225
  Transmission Date: 20140711
  Serious: Yes (Hospitalization)
  Sender: FDA-Public Use
  Company Number: JP-AMGEN-JPNSP2013037756

PATIENT
  Age: 64 Year
  Sex: Female

DRUGS (9)
  1. RANMARK [Suspect]
     Indication: METASTASES TO BONE
     Dosage: 9 TIMES IN TOTAL/NUMBER OF DOSES: 9 TIMES IN TOTAL
     Route: 058
     Dates: start: 20120726, end: 20130411
  2. TAXOTERE [Concomitant]
     Dosage: UNKNOWN
     Route: 065
  3. ZOMETA [Concomitant]
     Indication: METASTASES TO BONE
     Dosage: UNKNOWN
     Route: 065
     Dates: start: 20100424, end: 20120624
  4. PREDONINE                          /00016201/ [Concomitant]
     Indication: NAUSEA
     Dosage: UNKNOWN
     Route: 065
     Dates: start: 20100429
  5. XELODA [Concomitant]
     Indication: BREAST CANCER
     Dosage: UNKNOWN
     Route: 065
     Dates: start: 2011, end: 20120705
  6. ENDOXAN                            /00021101/ [Concomitant]
     Indication: BREAST CANCER
     Dosage: UNKNOWN
     Route: 065
     Dates: start: 2011, end: 20120705
  7. PACLITAXEL [Concomitant]
     Indication: BREAST CANCER
     Route: 042
     Dates: start: 20111129
  8. PREDONINE [Concomitant]
     Indication: NAUSEA
     Dosage: UNKNOWN
     Route: 065
     Dates: start: 20100429
  9. ENDOXAN [Concomitant]
     Indication: BREAST CANCER
     Dosage: UNKNOWN
     Route: 065
     Dates: start: 2011, end: 20120705

REACTIONS (1)
  - Osteonecrosis of jaw [Recovered/Resolved with Sequelae]
